FAERS Safety Report 9171158 (Version 2)
Quarter: 2013Q2

REPORT INFORMATION
  Report Type: Spontaneous
  Country: BR (occurrence: BR)
  Receive Date: 20130319
  Receipt Date: 20130401
  Transmission Date: 20140414
  Serious: Yes (Death, Hospitalization)
  Sender: FDA-Public Use
  Company Number: BR-JNJFOC-20130308102

PATIENT
  Age: 92 Year
  Sex: Female

DRUGS (3)
  1. XARELTO [Suspect]
     Indication: POSTOPERATIVE CARE
     Route: 048
  2. XARELTO [Suspect]
     Indication: THROMBOSIS PROPHYLAXIS
     Route: 048
  3. XARELTO [Suspect]
     Indication: HIP SURGERY
     Route: 048

REACTIONS (5)
  - Post procedural sepsis [Fatal]
  - Abscess bacterial [Fatal]
  - Post procedural haematoma [Unknown]
  - Infection [Unknown]
  - Off label use [Unknown]
